FAERS Safety Report 19664930 (Version 1)
Quarter: 2021Q3

REPORT INFORMATION
  Report Type: Spontaneous
  Country: US (occurrence: US)
  Receive Date: 20210806
  Receipt Date: 20210806
  Transmission Date: 20211014
  Serious: Yes (Other)
  Sender: FDA-Public Use
  Company Number: US-ACCORD-177091

PATIENT
  Age: 66 Year
  Sex: Female
  Weight: 187 kg

DRUGS (17)
  1. ABILIFY [Concomitant]
     Active Substance: ARIPIPRAZOLE
     Dates: start: 20101123, end: 20161130
  2. AMLODIPINE [Concomitant]
     Active Substance: AMLODIPINE BESYLATE
     Dosage: 5 MG
     Dates: start: 20110808, end: 20140519
  3. HYOMAX?SR [Concomitant]
     Active Substance: HYOSCYAMINE SULFATE
     Dosage: 0.375 MG
     Dates: start: 20100201, end: 20170418
  4. DEXILANT [Concomitant]
     Active Substance: DEXLANSOPRAZOLE
     Dosage: 60 MG
     Dates: start: 20100427, end: 20161102
  5. ATORVASTATIN [Concomitant]
     Active Substance: ATORVASTATIN
     Dosage: 10 MG
     Dates: start: 20130918, end: 20180824
  6. CYTOXAN [Suspect]
     Active Substance: CYCLOPHOSPHAMIDE
     Indication: BREAST CANCER
     Dates: start: 20131121, end: 20140217
  7. GLIPIZIDE. [Concomitant]
     Active Substance: GLIPIZIDE
     Dosage: 10 MG
     Dates: start: 20130717, end: 20170614
  8. DOCETAXEL ACCORD [Suspect]
     Active Substance: DOCETAXEL
     Indication: BREAST CANCER
     Dates: start: 20131021, end: 20140217
  9. GABAPENTIN. [Concomitant]
     Active Substance: GABAPENTIN
     Dates: start: 20121004, end: 20181004
  10. METFORMIN [Concomitant]
     Active Substance: METFORMIN HYDROCHLORIDE
     Dosage: 500 MG
     Dates: start: 20070111, end: 20180327
  11. METOPROLOL TARTRATE. [Concomitant]
     Active Substance: METOPROLOL TARTRATE
     Dosage: 25 MG
     Dates: start: 20110623, end: 20180807
  12. ROPINIROLE/ROPINIROLE HYDROCHLORIDE [Concomitant]
     Active Substance: ROPINIROLE HYDROCHLORIDE
     Dosage: 0.5 MG
     Dates: start: 20121017, end: 20180827
  13. LETROZOLE. [Concomitant]
     Active Substance: LETROZOLE
  14. BENICAR HCT [Concomitant]
     Active Substance: HYDROCHLOROTHIAZIDE\OLMESARTAN MEDOXOMIL
     Dosage: 40?12.5 MG
     Dates: start: 20101023, end: 20140319
  15. VENLAFAXINE/VENLAFAXINE HYDROCHLORIDE [Concomitant]
     Active Substance: VENLAFAXINE HYDROCHLORIDE
     Dosage: 100 MG
     Dates: start: 20110701, end: 20140314
  16. POTA CHLORIDE ER 10 MEQ [Concomitant]
     Dates: start: 20130521, end: 20150611
  17. LOSARTAN. [Concomitant]
     Active Substance: LOSARTAN

REACTIONS (1)
  - Alopecia [Not Recovered/Not Resolved]

NARRATIVE: CASE EVENT DATE: 20131028
